FAERS Safety Report 8814717 (Version 4)
Quarter: 2013Q1

REPORT INFORMATION
  Report Type: Spontaneous
  Country: GB (occurrence: GB)
  Receive Date: 20120928
  Receipt Date: 20130118
  Transmission Date: 20140127
  Serious: Yes (Death, Congenital Anomaly)
  Sender: FDA-Public Use
  Company Number: GB-JNJFOC-20120911013

PATIENT
  Sex: Male

DRUGS (2)
  1. OVEX [Suspect]
     Indication: FOETAL EXPOSURE DURING PREGNANCY
     Dosage: WEEK 5
     Route: 064
     Dates: start: 20120620
  2. OVEX [Suspect]
     Indication: FOETAL EXPOSURE DURING PREGNANCY
     Dosage: WEEK 3
     Route: 064
     Dates: start: 20120606

REACTIONS (2)
  - Trisomy 13 [Fatal]
  - Holoprosencephaly [Fatal]
